FAERS Safety Report 8360729-X (Version None)
Quarter: 2012Q2

REPORT INFORMATION
  Report Type: 
  Country: None (occurrence: None)
  Receive Date: 20120515
  Receipt Date: 20120504
  Transmission Date: 20120825
  Serious: Yes (Hospitalization)
  Sender: FDA-Public Use
  Company Number: IT-FRI-1000030215

PATIENT
  Sex: Female

DRUGS (8)
  1. ASPIRIN [Concomitant]
     Indication: PRODUCT USED FOR UNKNOWN INDICATION
  2. LYRICA [Concomitant]
     Indication: PRODUCT USED FOR UNKNOWN INDICATION
     Dosage: 150 MG
     Route: 048
  3. ESCITALOPRAM [Suspect]
     Indication: INTENTIONAL SELF-INJURY
     Dosage: OVERDOSE: 28 UNIT DOSE (FREQUENCY - TOTAL)
     Route: 048
     Dates: start: 20120414, end: 20120414
  4. XANAX [Suspect]
     Indication: INTENTIONAL OVERDOSE
     Dosage: OVERDOSE: 20 UNIT DOSE (FREQUENCY - TOTAL)
     Route: 048
     Dates: start: 20120414, end: 20120414
  5. ACETAMINOPHEN AND CODEINE PHOSPHATE [Suspect]
     Indication: INTENTIONAL SELF-INJURY
     Dosage: OVERDOSE: 16 UNIT DOSE (FREQUENCY - TOTAL)
     Route: 048
     Dates: start: 20120414, end: 20120414
  6. CLONAZEPAM [Suspect]
     Indication: INTENTIONAL SELF-INJURY
     Dosage: OVERDOSE: 10 UNIT DOSE (FREQUENCY - TOTAL
     Route: 048
     Dates: start: 20120414, end: 20120414
  7. DULOXETINE HYDROCHLORIDE [Concomitant]
     Indication: PRODUCT USED FOR UNKNOWN INDICATION
     Dosage: 60 MG
     Route: 048
     Dates: start: 20120214, end: 20120414
  8. MINIAS [Suspect]
     Indication: INTENTIONAL OVERDOSE
     Dosage: OVERDOSE: 30 UNIT DOSE (FREQUENCY - TOTAL)
     Route: 048
     Dates: start: 20120414, end: 20120414

REACTIONS (4)
  - OVERDOSE [None]
  - SOPOR [None]
  - BRADYPNOEA [None]
  - MEDICATION ERROR [None]
